FAERS Safety Report 10193003 (Version 2)
Quarter: 2020Q4

REPORT INFORMATION
  Report Type: Spontaneous
  Country: CA (occurrence: CA)
  Receive Date: 20140524
  Receipt Date: 20201029
  Transmission Date: 20210113
  Serious: Yes (Other)
  Sender: FDA-Public Use
  Company Number: PHHY2014CA062489

PATIENT
  Age: 19 Year
  Sex: Female

DRUGS (57)
  1. EUCALYPTUS OIL [Suspect]
     Active Substance: EUCALYPTUS OIL
     Indication: COMPLEX REGIONAL PAIN SYNDROME
     Dosage: UNK
  2. VENLAFAXINE [Suspect]
     Active Substance: VENLAFAXINE HYDROCHLORIDE
     Indication: COMPLEX REGIONAL PAIN SYNDROME
     Dosage: UNK
  3. KETAMINE [Suspect]
     Active Substance: KETAMINE
     Dosage: UNK
     Route: 042
  4. HYDROMORPHONE [Suspect]
     Active Substance: HYDROMORPHONE
     Indication: COMPLEX REGIONAL PAIN SYNDROME
     Dosage: UNK
  5. ACETAMINOPHEN. [Suspect]
     Active Substance: ACETAMINOPHEN
     Indication: COMPLEX REGIONAL PAIN SYNDROME
     Dosage: UNK
  6. CODEINE [Suspect]
     Active Substance: CODEINE
     Indication: COMPLEX REGIONAL PAIN SYNDROME
     Dosage: UNK
  7. PREGABALIN. [Suspect]
     Active Substance: PREGABALIN
     Indication: COMPLEX REGIONAL PAIN SYNDROME
     Dosage: 150 MG, BID
  8. AMITRIPTYLINE [Suspect]
     Active Substance: AMITRIPTYLINE
     Dosage: 150 MG
  9. AMITRIPTYLINE [Suspect]
     Active Substance: AMITRIPTYLINE
     Dosage: 50 MG, QD
     Route: 065
  10. AMITRIPTYLINE [Suspect]
     Active Substance: AMITRIPTYLINE
     Dosage: 50 MG
     Route: 065
  11. TRAMADOL HYDROCHLORIDE. [Suspect]
     Active Substance: TRAMADOL HYDROCHLORIDE
     Indication: COMPLEX REGIONAL PAIN SYNDROME
     Dosage: UNK
  12. CITALOPRAM [Suspect]
     Active Substance: CITALOPRAM HYDROBROMIDE
     Indication: COMPLEX REGIONAL PAIN SYNDROME
     Dosage: UNK
  13. NORTRIPTYLINE [Suspect]
     Active Substance: NORTRIPTYLINE
     Indication: COMPLEX REGIONAL PAIN SYNDROME
     Dosage: UNK
  14. KETAMINE [Suspect]
     Active Substance: KETAMINE
     Indication: COMPLEX REGIONAL PAIN SYNDROME
     Dosage: 25 MG, BID
     Route: 048
  15. CLONIDINE. [Suspect]
     Active Substance: CLONIDINE
     Indication: COMPLEX REGIONAL PAIN SYNDROME
     Dosage: UNK
  16. MEXILETINE [Suspect]
     Active Substance: MEXILETINE
     Indication: COMPLEX REGIONAL PAIN SYNDROME
     Dosage: UNK
  17. DICLOFENAC [Suspect]
     Active Substance: DICLOFENAC
     Indication: PRODUCT USED FOR UNKNOWN INDICATION
     Dosage: UNK
     Route: 065
  18. LIDOCAINE. [Suspect]
     Active Substance: LIDOCAINE
     Dosage: UNK
  19. METHADONE [Suspect]
     Active Substance: METHADONE HYDROCHLORIDE
     Indication: COMPLEX REGIONAL PAIN SYNDROME
     Dosage: UNK
  20. OXYCODONE HYDROCHLORIDE. [Suspect]
     Active Substance: OXYCODONE HYDROCHLORIDE
     Indication: PRODUCT USED FOR UNKNOWN INDICATION
     Dosage: 120 MG, BID
  21. NAPROXEN. [Suspect]
     Active Substance: NAPROXEN
     Indication: COMPLEX REGIONAL PAIN SYNDROME
     Dosage: UNK
  22. BUPROPION. [Suspect]
     Active Substance: BUPROPION
     Indication: COMPLEX REGIONAL PAIN SYNDROME
     Dosage: UNK
  23. OXYCODONE HYDROCHLORIDE. [Suspect]
     Active Substance: OXYCODONE HYDROCHLORIDE
     Dosage: 40 MG, UNK
     Route: 065
  24. KETAMINE [Suspect]
     Active Substance: KETAMINE
     Dosage: UNK
     Route: 048
  25. TOPIRAMATE. [Suspect]
     Active Substance: TOPIRAMATE
     Indication: COMPLEX REGIONAL PAIN SYNDROME
     Dosage: UNK
  26. MORPHINE [Suspect]
     Active Substance: MORPHINE
     Indication: COMPLEX REGIONAL PAIN SYNDROME
     Dosage: UNK
  27. ROSEMARY OIL [Suspect]
     Active Substance: ROSEMARY OIL
     Indication: COMPLEX REGIONAL PAIN SYNDROME
     Dosage: UNK
  28. CAPSAICIN. [Suspect]
     Active Substance: CAPSAICIN
     Indication: COMPLEX REGIONAL PAIN SYNDROME
     Dosage: UNK
  29. IBUPROFEN. [Suspect]
     Active Substance: IBUPROFEN
     Indication: COMPLEX REGIONAL PAIN SYNDROME
     Dosage: UNK
  30. OXYCODONE HYDROCHLORIDE. [Suspect]
     Active Substance: OXYCODONE HYDROCHLORIDE
     Dosage: 80 MG, TID
     Route: 065
  31. PREGABALIN. [Suspect]
     Active Substance: PREGABALIN
     Dosage: 150 MG, QD
     Route: 065
  32. GABAPENTIN. [Suspect]
     Active Substance: GABAPENTIN
     Indication: COMPLEX REGIONAL PAIN SYNDROME
     Dosage: UNK
  33. LAVENDER OIL [Suspect]
     Active Substance: LAVENDER OIL
     Indication: COMPLEX REGIONAL PAIN SYNDROME
     Dosage: UNK
  34. RAVENSARA AROMATICA [Suspect]
     Active Substance: HERBALS
     Indication: COMPLEX REGIONAL PAIN SYNDROME
     Dosage: UNK
  35. DEXTROMETHORPHAN [Suspect]
     Active Substance: DEXTROMETHORPHAN
     Indication: COMPLEX REGIONAL PAIN SYNDROME
     Dosage: UNK
  36. KETOROLAC [Suspect]
     Active Substance: KETOROLAC TROMETHAMINE
     Indication: COMPLEX REGIONAL PAIN SYNDROME
     Dosage: UNK
  37. OXYCODONE HYDROCHLORIDE. [Suspect]
     Active Substance: OXYCODONE HYDROCHLORIDE
     Dosage: 50 MG (AS NEEDED, BUT NOT DAILY)
  38. FENTANYL. [Suspect]
     Active Substance: FENTANYL
     Indication: COMPLEX REGIONAL PAIN SYNDROME
     Dosage: 25 UG/HR
     Route: 062
  39. PREGABALIN. [Suspect]
     Active Substance: PREGABALIN
     Dosage: 100 MG
  40. PREGABALIN. [Suspect]
     Active Substance: PREGABALIN
     Dosage: 50 MG, BID
     Route: 065
  41. CELECOXIB. [Suspect]
     Active Substance: CELECOXIB
     Indication: COMPLEX REGIONAL PAIN SYNDROME
     Dosage: UNK
     Route: 065
  42. DULOXETINE. [Suspect]
     Active Substance: DULOXETINE
     Indication: COMPLEX REGIONAL PAIN SYNDROME
     Dosage: UNK
  43. LIDOCAINE. [Suspect]
     Active Substance: LIDOCAINE
     Indication: COMPLEX REGIONAL PAIN SYNDROME
     Dosage: UNK
  44. OXYCODONE HYDROCHLORIDE. [Suspect]
     Active Substance: OXYCODONE HYDROCHLORIDE
     Dosage: 10 MG, TID
     Route: 065
  45. FENTANYL. [Suspect]
     Active Substance: FENTANYL
     Dosage: 12 UG/HR, (EVERY 3 DAYS)
     Route: 062
  46. AMITRIPTYLINE [Suspect]
     Active Substance: AMITRIPTYLINE
     Indication: COMPLEX REGIONAL PAIN SYNDROME
     Dosage: 150 MG
  47. DESIPRAMINE [Suspect]
     Active Substance: DESIPRAMINE
     Indication: COMPLEX REGIONAL PAIN SYNDROME
     Dosage: UNK
  48. OXCARBAZEPINE. [Suspect]
     Active Substance: OXCARBAZEPINE
     Indication: COMPLEX REGIONAL PAIN SYNDROME
     Dosage: UNK
  49. EMLA [Suspect]
     Active Substance: LIDOCAINE\PRILOCAINE
     Indication: COMPLEX REGIONAL PAIN SYNDROME
     Dosage: UNK
  50. BERGAMOT OIL [Suspect]
     Active Substance: BERGAMOT OIL
     Indication: COMPLEX REGIONAL PAIN SYNDROME
     Dosage: UNK
  51. CARBAMAZEPINE. [Suspect]
     Active Substance: CARBAMAZEPINE
     Indication: COMPLEX REGIONAL PAIN SYNDROME
     Dosage: UNK
  52. ASPIRIN. [Suspect]
     Active Substance: ASPIRIN
     Indication: COMPLEX REGIONAL PAIN SYNDROME
     Dosage: UNK
  53. OXYCODONE HYDROCHLORIDE. [Suspect]
     Active Substance: OXYCODONE HYDROCHLORIDE
     Dosage: 50 MG (EVERY 4 HOURS AS NEEDED)
  54. OXYCODONE HYDROCHLORIDE. [Suspect]
     Active Substance: OXYCODONE HYDROCHLORIDE
     Dosage: 60 MG, BID
  55. FENTANYL. [Suspect]
     Active Substance: FENTANYL
     Dosage: 100 UG/HR, (EVERY 3 DAYS)
     Route: 062
  56. FENTANYL. [Suspect]
     Active Substance: FENTANYL
     Dosage: UNK
     Route: 062
  57. MEMANTINE. [Suspect]
     Active Substance: MEMANTINE
     Indication: COMPLEX REGIONAL PAIN SYNDROME
     Dosage: UNK

REACTIONS (4)
  - Withdrawal syndrome [Unknown]
  - Immune thrombocytopenia [Unknown]
  - Therapy non-responder [Unknown]
  - Weight increased [Unknown]
